FAERS Safety Report 9288163 (Version 1)
Quarter: 2013Q2

REPORT INFORMATION
  Report Type: Spontaneous
  Country: US (occurrence: US)
  Receive Date: 20130514
  Receipt Date: 20130514
  Transmission Date: 20140414
  Serious: Yes (Other)
  Sender: FDA-Public Use
  Company Number: US-SANOFI-AVENTIS-2013SA048688

PATIENT
  Sex: Female

DRUGS (1)
  1. ALLEGRA 24 HOUR [Suspect]
     Indication: URTICARIA
     Route: 048
     Dates: start: 2011

REACTIONS (3)
  - Angioedema [Unknown]
  - Weight increased [Recovered/Resolved]
  - Increased appetite [Recovered/Resolved]
